FAERS Safety Report 13135213 (Version 1)
Quarter: 2017Q1

REPORT INFORMATION
  Report Type: Spontaneous
  Country: US (occurrence: US)
  Receive Date: 20170120
  Receipt Date: 20170120
  Transmission Date: 20170428
  Serious: No
  Sender: FDA-Public Use
  Company Number: GXBR2016US003565

PATIENT
  Sex: Female

DRUGS (1)
  1. GLATOPA [Suspect]
     Active Substance: GLATIRAMER ACETATE
     Indication: MULTIPLE SCLEROSIS
     Dosage: 20 MG, QD
     Route: 065

REACTIONS (6)
  - Asthenia [Unknown]
  - Coordination abnormal [Unknown]
  - Multiple sclerosis relapse [Unknown]
  - Muscle spasms [Unknown]
  - Drug ineffective [Unknown]
  - Visual impairment [Unknown]

NARRATIVE: CASE EVENT DATE: 20161025
